FAERS Safety Report 6383754-7 (Version None)
Quarter: 2009Q4

REPORT INFORMATION
  Report Type: 
  Country: None (occurrence: None)
  Receive Date: 20091001
  Receipt Date: 20090922
  Transmission Date: 20100525
  Serious: Yes (Other)
  Sender: FDA-Public Use
  Company Number: US-BAYER-200934232NA

PATIENT
  Sex: Female

DRUGS (1)
  1. OCELLA [Suspect]
     Indication: MENSTRUAL DISCOMFORT
     Dates: start: 20090101

REACTIONS (3)
  - ANXIETY [None]
  - CONDITION AGGRAVATED [None]
  - PAIN [None]
